FAERS Safety Report 13481289 (Version 1)
Quarter: 2017Q2

REPORT INFORMATION
  Report Type: Spontaneous
  Country: GB (occurrence: GB)
  Receive Date: 20170425
  Receipt Date: 20170425
  Transmission Date: 20170830
  Serious: Yes (Other)
  Sender: FDA-Public Use
  Company Number: PHFR2017GB002712

PATIENT
  Age: 56 Year
  Sex: Male
  Weight: 73 kg

DRUGS (2)
  1. CLARITHROMYCIN. [Suspect]
     Active Substance: CLARITHROMYCIN
     Indication: LOWER RESPIRATORY TRACT INFECTION
     Dosage: TOOK 6 TABLETS OF 500MG OVER 2 DAYS.
     Route: 048
     Dates: start: 20170310, end: 20170312
  2. AMOXICILLIN. [Concomitant]
     Active Substance: AMOXICILLIN
     Indication: LOWER RESPIRATORY TRACT INFECTION
     Route: 065

REACTIONS (3)
  - Diarrhoea [Recovered/Resolved]
  - Nightmare [Recovered/Resolved]
  - Nausea [Recovered/Resolved]

NARRATIVE: CASE EVENT DATE: 20170312
